FAERS Safety Report 18124101 (Version 1)
Quarter: 2020Q3

REPORT INFORMATION
  Report Type: Report from Study
  Country: FR (occurrence: FR)
  Receive Date: 20200807
  Receipt Date: 20200807
  Transmission Date: 20201103
  Serious: Yes (Hospitalization, Other)
  Sender: FDA-Public Use
  Company Number: FR-AUROBINDO-AUR-APL-2020-037977

PATIENT
  Age: 70 Year
  Sex: Male
  Weight: 84 kg

DRUGS (1)
  1. BELINOSTAT INJECTION [Suspect]
     Active Substance: BELINOSTAT
     Indication: CUTANEOUS T-CELL LYMPHOMA
     Dosage: 1000 MILLIGRAM/SQ. METER, D1, D2, D3, D4, D5 (21 DAY CYCLE)
     Route: 042
     Dates: start: 20200330

REACTIONS (3)
  - Pseudomonas infection [Recovered/Resolved]
  - Device related infection [Recovered/Resolved]
  - Pulmonary sepsis [Recovered/Resolved]

NARRATIVE: CASE EVENT DATE: 20200707
